FAERS Safety Report 10180917 (Version 1)
Quarter: 2014Q2

REPORT INFORMATION
  Report Type: Spontaneous
  Country: US (occurrence: US)
  Receive Date: 20140519
  Receipt Date: 20140519
  Transmission Date: 20141212
  Serious: No
  Sender: FDA-Public Use
  Company Number: US-AMGEN INC.-USASP2014007549

PATIENT
  Age: 68 Year
  Sex: Female

DRUGS (5)
  1. PROLIA [Suspect]
     Indication: OSTEOPENIA
     Dosage: UNK
     Route: 065
  2. PROLIA [Suspect]
  3. RESTASIS [Concomitant]
  4. EFFEXOR [Concomitant]
     Dosage: 37.5 MG, UNK
  5. CALCIUM [Concomitant]

REACTIONS (3)
  - Loose tooth [Unknown]
  - Jaw disorder [Unknown]
  - Tooth fracture [Unknown]
